FAERS Safety Report 18677077 (Version 1)
Quarter: 2020Q4

REPORT INFORMATION
  Report Type: Report from Study
  Country: FI (occurrence: FI)
  Receive Date: 20201229
  Receipt Date: 20201229
  Transmission Date: 20210114
  Serious: Yes (Other)
  Sender: FDA-Public Use
  Company Number: FI-MYLANLABS-2020M1104860

PATIENT
  Age: 53 Year
  Sex: Male

DRUGS (1)
  1. LEPONEX [Suspect]
     Active Substance: CLOZAPINE
     Indication: PRODUCT USED FOR UNKNOWN INDICATION
     Dosage: UNK
     Dates: start: 20201117, end: 2020

REACTIONS (5)
  - Pyrexia [Unknown]
  - Myocarditis [Unknown]
  - C-reactive protein increased [Unknown]
  - Electrocardiogram abnormal [Unknown]
  - Troponin I increased [Unknown]

NARRATIVE: CASE EVENT DATE: 2020
